FAERS Safety Report 5312277-9 (Version None)
Quarter: 2007Q2

REPORT INFORMATION
  Report Type: 
  Country: None (occurrence: None)
  Receive Date: 20070430
  Receipt Date: 20061219
  Transmission Date: 20071010
  Serious: No
  Sender: FDA-Public Use
  Company Number: 2006UW19114

PATIENT
  Age: 48 Year
  Sex: Male
  Weight: 83.9 kg

DRUGS (5)
  1. NEXIUM [Suspect]
     Indication: HIATUS HERNIA
     Route: 048
     Dates: start: 20031001
  2. NEXIUM [Suspect]
     Indication: DYSPEPSIA
     Route: 048
     Dates: start: 20031001
  3. NEXIUM [Suspect]
     Route: 048
     Dates: start: 20060901
  4. NEXIUM [Suspect]
     Route: 048
     Dates: start: 20060901
  5. ASPIRIN [Concomitant]
     Route: 048

REACTIONS (2)
  - DYSPEPSIA [None]
  - SENSATION OF FOREIGN BODY [None]
